FAERS Safety Report 18199521 (Version 2)
Quarter: 2020Q3

REPORT INFORMATION
  Report Type: Spontaneous
  Country: RU (occurrence: RU)
  Receive Date: 20200826
  Receipt Date: 20200827
  Transmission Date: 20201103
  Serious: Yes (Other)
  Sender: FDA-Public Use
  Company Number: RU-009507513-2008RUS011769

PATIENT
  Age: 66 Year
  Sex: Female
  Weight: 76 kg

DRUGS (1)
  1. KEYTRUDA [Suspect]
     Active Substance: PEMBROLIZUMAB
     Dosage: 150 MG PER DAY
     Route: 042
     Dates: start: 20190902, end: 20190902

REACTIONS (1)
  - Skin toxicity [Recovered/Resolved with Sequelae]

NARRATIVE: CASE EVENT DATE: 20200626
